FAERS Safety Report 9002662 (Version 2)
Quarter: 2013Q1

REPORT INFORMATION
  Report Type: Spontaneous
  Country: IT (occurrence: None)
  Receive Date: 20121226
  Receipt Date: 20130129
  Transmission Date: 20140127
  Serious: Yes (Life-Threatening)
  Sender: FDA-Public Use
  Company Number: DSA_61478_2012

PATIENT
  Age: 88 Year
  Sex: Female

DRUGS (2)
  1. ENAPREN [Suspect]
     Indication: ESSENTIAL HYPERTENSION
     Route: 048
     Dates: start: 20100101, end: 20121206
  2. LASITONE [Suspect]
     Indication: ESSENTIAL HYPERTENSION
     Dosage: (25+37 MG; PO QD)
     Route: 048
     Dates: start: 20121015, end: 20121206

REACTIONS (1)
  - Renal failure acute [None]
